FAERS Safety Report 9892368 (Version 1)
Quarter: 2014Q1

REPORT INFORMATION
  Report Type: Spontaneous
  Country: US (occurrence: US)
  Receive Date: 20140212
  Receipt Date: 20140212
  Transmission Date: 20141002
  Serious: Yes (Hospitalization, Other)
  Sender: FDA-Public Use
  Company Number: US-ELI_LILLY_AND_COMPANY-US201402000254

PATIENT
  Sex: Male

DRUGS (5)
  1. HUMALOG LISPRO [Suspect]
     Indication: TYPE 2 DIABETES MELLITUS
     Dosage: UNK, PRN
     Route: 065
  2. LANTUS [Concomitant]
  3. METFORMIN [Concomitant]
  4. SIMVASTATIN [Concomitant]
  5. CARVEDILOL [Concomitant]

REACTIONS (10)
  - Non-Hodgkin^s lymphoma [Recovered/Resolved]
  - Non-Hodgkin^s lymphoma recurrent [Recovered/Resolved]
  - Salivary gland cancer [Unknown]
  - Loss of consciousness [Unknown]
  - Blood potassium increased [Unknown]
  - Blood magnesium decreased [Unknown]
  - VIIth nerve paralysis [Unknown]
  - Ear infection [Unknown]
  - Weight increased [Unknown]
  - Blood glucose increased [Unknown]
